FAERS Safety Report 9741687 (Version 3)
Quarter: 2014Q2

REPORT INFORMATION
  Report Type: Report from Study
  Country: BR (occurrence: BR)
  Receive Date: 20131210
  Receipt Date: 20140428
  Transmission Date: 20141212
  Serious: Yes (Other)
  Sender: FDA-Public Use
  Company Number: BR-ROCHE-1312467

PATIENT
  Sex: Male
  Weight: 85 kg

DRUGS (4)
  1. INTERFERON ALFA-2A [Suspect]
     Indication: HEPATITIS C
     Route: 065
     Dates: start: 2005
  2. RIBAVIRIN [Suspect]
     Indication: HEPATITIS C
     Route: 048
     Dates: start: 2005
  3. GLIBENCLAMIDE [Suspect]
     Indication: DIABETES MELLITUS
     Route: 065
  4. GLIFAGE [Concomitant]
     Indication: DIABETES MELLITUS
     Route: 065

REACTIONS (2)
  - Hepatitis C [Unknown]
  - Asthenia [Recovered/Resolved]
